FAERS Safety Report 13898871 (Version 1)
Quarter: 2017Q3

REPORT INFORMATION
  Report Type: Spontaneous
  Country: US (occurrence: US)
  Receive Date: 20170823
  Receipt Date: 20170823
  Transmission Date: 20171127
  Serious: Yes (Life-Threatening, Hospitalization, Other)
  Sender: FDA-Public Use
  Company Number: None

PATIENT
  Age: 46 Year
  Sex: Female
  Weight: 72.9 kg

DRUGS (5)
  1. FERROUS SULFATE. [Concomitant]
     Active Substance: FERROUS SULFATE
  2. TYLENOL [Concomitant]
     Active Substance: ACETAMINOPHEN
  3. OMEPRAZOLE. [Concomitant]
     Active Substance: OMEPRAZOLE
  4. INFED [Suspect]
     Active Substance: IRON DEXTRAN
     Indication: IRON DEFICIENCY ANAEMIA
     Dosage: ?          QUANTITY:1 INJECTION(S);OTHER FREQUENCY:ONE TIME;?
     Route: 058
     Dates: start: 20170728, end: 20170728
  5. CARAFATE [Concomitant]
     Active Substance: SUCRALFATE

REACTIONS (13)
  - Back pain [None]
  - Hypoaesthesia [None]
  - Muscle twitching [None]
  - Neck pain [None]
  - Hyperhidrosis [None]
  - Amnesia [None]
  - Palpitations [None]
  - Migraine [None]
  - Anaphylactic reaction [None]
  - Headache [None]
  - Dyspnoea [None]
  - Chest pain [None]
  - Paraesthesia [None]

NARRATIVE: CASE EVENT DATE: 20170728
